FAERS Safety Report 18953078 (Version 4)
Quarter: 2022Q2

REPORT INFORMATION
  Report Type: Spontaneous
  Country: JP (occurrence: JP)
  Receive Date: 20210301
  Receipt Date: 20220407
  Transmission Date: 20220721
  Serious: Yes (Death)
  Sender: FDA-Public Use
  Company Number: JP-ELI_LILLY_AND_COMPANY-JP202102009372

PATIENT
  Age: 75 Year
  Sex: Female

DRUGS (4)
  1. OLUMIANT [Suspect]
     Active Substance: BARICITINIB
     Indication: Rheumatoid arthritis
     Dosage: 4 MG, DAILY
     Route: 048
     Dates: start: 20191112, end: 20210212
  2. PREDONINE [Concomitant]
     Active Substance: PREDNISOLONE
     Indication: Rheumatoid arthritis
  3. PREDONINE [Concomitant]
     Active Substance: PREDNISOLONE
     Indication: Henoch-Schonlein purpura
  4. METHOTREXATE [Concomitant]
     Active Substance: METHOTREXATE
     Indication: Rheumatoid arthritis

REACTIONS (2)
  - Diffuse large B-cell lymphoma stage IV [Fatal]
  - Lymphadenopathy [Recovering/Resolving]

NARRATIVE: CASE EVENT DATE: 20200501
